FAERS Safety Report 9346092 (Version 2)
Quarter: 2013Q3

REPORT INFORMATION
  Report Type: Spontaneous
  Country: DE (occurrence: DE)
  Receive Date: 20130613
  Receipt Date: 20130820
  Transmission Date: 20140515
  Serious: Yes (Other)
  Sender: FDA-Public Use
  Company Number: DE-BRISTOL-MYERS SQUIBB COMPANY-18914127

PATIENT
  Age: 71 Year
  Sex: Female
  Weight: 57 kg

DRUGS (12)
  1. ABATACEPT SUBQ INJECTION 125MG/ML [Suspect]
     Indication: RHEUMATOID ARTHRITIS
     Dosage: SECOND DOSE ON 13MAY2013
     Route: 058
     Dates: start: 20130506
  2. TRAMAL [Suspect]
  3. CELEBREX [Suspect]
  4. PREDNISOLONE [Suspect]
  5. RAMIPRIL [Concomitant]
  6. SYMBICORT [Concomitant]
  7. PANTOZOL [Concomitant]
  8. PREDNISOLONE [Concomitant]
  9. SPIRIVA [Concomitant]
  10. EUNERPAN [Concomitant]
  11. EUPHYLONG [Concomitant]
  12. SERTRALINE [Concomitant]
     Dosage: 1 DF:50

REACTIONS (2)
  - Cardiac failure [Recovering/Resolving]
  - Chronic obstructive pulmonary disease [Recovering/Resolving]
